FAERS Safety Report 5537653-0 (Version None)
Quarter: 2007Q4

REPORT INFORMATION
  Report Type: 
  Country: None (occurrence: None)
  Receive Date: 20071207
  Receipt Date: 20071127
  Transmission Date: 20080405
  Serious: Yes (Death, Hospitalization)
  Sender: FDA-Public Use
  Company Number: FR-JNJFOC-20071200205

PATIENT
  Sex: Female

DRUGS (13)
  1. CONTRAMAL [Suspect]
     Indication: DRUG USE FOR UNKNOWN INDICATION
     Route: 065
     Dates: start: 20070314, end: 20070406
  2. MOCLAMINE [Interacting]
     Indication: DRUG USE FOR UNKNOWN INDICATION
     Route: 065
  3. PROPOFAN [Concomitant]
     Route: 065
  4. KENZEN [Concomitant]
     Route: 065
  5. ZANIDIP [Concomitant]
     Route: 065
  6. LASIX [Concomitant]
     Route: 065
  7. LIORESAL [Concomitant]
     Route: 065
  8. PREVISCAN [Concomitant]
     Route: 065
  9. DUPHALAC [Concomitant]
     Route: 065
  10. RIVOTRIL [Concomitant]
     Route: 065
  11. NEURONTIN [Concomitant]
     Route: 065
  12. EFFEXOR [Concomitant]
     Route: 065
  13. ANTIBIOTICS [Concomitant]
     Route: 065

REACTIONS (7)
  - ATRIAL FIBRILLATION [None]
  - CONSTIPATION [None]
  - DRUG INTERACTION [None]
  - PNEUMONIA [None]
  - SHOCK [None]
  - SYSTEMIC INFLAMMATORY RESPONSE SYNDROME [None]
  - TACHYCARDIA [None]
